FAERS Safety Report 9830893 (Version 2)
Quarter: 2014Q2

REPORT INFORMATION
  Report Type: Report from Study
  Country: JP (occurrence: JP)
  Receive Date: 20140120
  Receipt Date: 20140509
  Transmission Date: 20141212
  Serious: Yes (Other)
  Sender: FDA-Public Use
  Company Number: PHHY2014JP005456

PATIENT
  Age: 88 Year
  Sex: Female

DRUGS (5)
  1. EXELON [Suspect]
     Indication: DEMENTIA ALZHEIMER^S TYPE
     Dosage: 1.9 MG, DAILY (4.5 MG RIVASTIGMINE BASE)
     Route: 062
     Dates: start: 20130412, end: 20130509
  2. EXELON [Suspect]
     Dosage: 4.6 MG, DAILY (9 MG RIVASTIGMINE BASE)
     Route: 062
     Dates: start: 20130510, end: 20130606
  3. EXELON [Suspect]
     Dosage: 6.9 MG, DAILY (13.5 MG RIVASTIGMINE BASE)
     Route: 062
     Dates: start: 20130607
  4. ARGAMATE [Concomitant]
     Dosage: UNK UKN, UNK
  5. FUROSEMIDE [Concomitant]
     Dosage: UNK UKN, UNK

REACTIONS (2)
  - Renal failure chronic [Not Recovered/Not Resolved]
  - Off label use [Unknown]
